FAERS Safety Report 17224537 (Version 11)
Quarter: 2025Q4

REPORT INFORMATION
  Report Type: Spontaneous
  Country: US (occurrence: US)
  Receive Date: 20200102
  Receipt Date: 20251114
  Transmission Date: 20260118
  Serious: Yes (Other)
  Sender: PFIZER
  Company Number: US-PFIZER INC-2019560693

PATIENT
  Age: 71 Year
  Sex: Female
  Weight: 43 kg

DRUGS (1)
  1. ESTRING [Suspect]
     Active Substance: ESTRADIOL
     Indication: Osteoporosis postmenopausal
     Dosage: 2 MILLIGRAMS

REACTIONS (5)
  - Hand fracture [Unknown]
  - Affective disorder [Unknown]
  - Feeling abnormal [Unknown]
  - Fall [Unknown]
  - Vulvovaginal pain [Unknown]
